FAERS Safety Report 26091381 (Version 1)
Quarter: 2025Q4

REPORT INFORMATION
  Report Type: Spontaneous
  Country: TW (occurrence: TW)
  Receive Date: 20251126
  Receipt Date: 20251126
  Transmission Date: 20260118
  Serious: Yes (Hospitalization)
  Sender: ALEXION PHARMACEUTICALS
  Company Number: TW-AstraZeneca-CH-01001947A

PATIENT
  Age: 54 Year
  Sex: Male
  Weight: 68.5 kg

DRUGS (2)
  1. XIGDUO XR [Suspect]
     Active Substance: DAPAGLIFLOZIN PROPANEDIOL\METFORMIN HYDROCHLORIDE
     Dosage: UNK UNK, QD
     Route: 065
  2. CRESTOR [Suspect]
     Active Substance: ROSUVASTATIN CALCIUM
     Dosage: 10 MILLIGRAM, QD
     Route: 065

REACTIONS (4)
  - Nephrolithiasis [Unknown]
  - Fatigue [Unknown]
  - Palpitations [Unknown]
  - Sleep deficit [Unknown]

NARRATIVE: CASE EVENT DATE: 20201110
